FAERS Safety Report 6591480-4 (Version None)
Quarter: 2010Q1

REPORT INFORMATION
  Report Type: 
  Country: None (occurrence: None)
  Receive Date: 20100219
  Receipt Date: 20100212
  Transmission Date: 20100710
  Serious: Yes (Hospitalization)
  Sender: FDA-Public Use
  Company Number: CA-GILEAD-2010-0027086

PATIENT
  Age: 38 Year
  Sex: Male

DRUGS (7)
  1. TRUVADA [Suspect]
     Indication: HIV INFECTION
     Dates: start: 20080601
  2. REYATAZ [Concomitant]
     Indication: HIV INFECTION
     Dates: start: 20080601
  3. RITONAVIR [Concomitant]
     Indication: HIV INFECTION
     Dates: start: 20080601
  4. DILANTIN [Concomitant]
     Indication: CONVULSION
  5. MIRTAZAPINE [Concomitant]
     Indication: DEPRESSION
  6. AMITRIPTYLINE HCL [Concomitant]
     Dates: end: 20100101
  7. TRAZODONE [Concomitant]
     Dates: end: 20090101

REACTIONS (2)
  - CONFUSIONAL STATE [None]
  - DRUG TOXICITY [None]
